FAERS Safety Report 7629252-1 (Version None)
Quarter: 2011Q3

REPORT INFORMATION
  Report Type: 
  Country: None (occurrence: None)
  Receive Date: 20110722
  Receipt Date: 20110716
  Transmission Date: 20111222
  Serious: Yes (Other)
  Sender: FDA-Public Use
  Company Number: PHHY2011US64363

PATIENT
  Sex: Male

DRUGS (2)
  1. FANAPT [Suspect]
     Dosage: 2 MG, UNK
     Route: 048
  2. FANAPT [Suspect]
     Dosage: 1 MG, BID
     Route: 048

REACTIONS (2)
  - INCORRECT DOSE ADMINISTERED [None]
  - DYSTONIA [None]
